FAERS Safety Report 21164116 (Version 1)
Quarter: 2022Q3

REPORT INFORMATION
  Report Type: Spontaneous
  Country: PT (occurrence: PT)
  Receive Date: 20220803
  Receipt Date: 20220803
  Transmission Date: 20221026
  Serious: Yes (Other)
  Sender: FDA-Public Use
  Company Number: None

PATIENT
  Age: 72 Year
  Sex: Male

DRUGS (1)
  1. SORAFENIB [Suspect]
     Active Substance: SORAFENIB
     Indication: Hepatocellular carcinoma
     Dosage: 600 MILLIGRAM DAILY; 600MG/DAY , FREQUENCY TIME : 1 DAY , DURATION : 6 MONTH , ADDITIONAL INFORMATIO
     Dates: start: 20220103, end: 20220713

REACTIONS (2)
  - Rash [Not Recovered/Not Resolved]
  - Diarrhoea [Recovered/Resolved]

NARRATIVE: CASE EVENT DATE: 20220103
